FAERS Safety Report 7505677-X (Version None)
Quarter: 2011Q2

REPORT INFORMATION
  Report Type: 
  Country: None (occurrence: None)
  Receive Date: 20110526
  Receipt Date: 20110516
  Transmission Date: 20111010
  Serious: Yes (Other)
  Sender: FDA-Public Use
  Company Number: US-AMGEN-USASP2011025564

PATIENT
  Age: 70 Year
  Sex: Male
  Weight: 116 kg

DRUGS (3)
  1. COUMADIN [Concomitant]
  2. ZOCOR [Concomitant]
  3. PROCRIT [Suspect]
     Indication: RENAL FAILURE CHRONIC
     Dosage: 10000 IU, 3 TIMES/WK
     Route: 058

REACTIONS (2)
  - MULTIPLE MYELOMA [None]
  - DIALYSIS [None]
